FAERS Safety Report 4704165-3 (Version None)
Quarter: 2005Q2

REPORT INFORMATION
  Report Type: 
  Country: None (occurrence: None)
  Receive Date: 20050630
  Receipt Date: 20050625
  Transmission Date: 20051028
  Serious: Yes (Other)
  Sender: FDA-Public Use
  Company Number: PHEH2005US07196

PATIENT

DRUGS (1)
  1. DIOVAN [Suspect]
     Dosage: UNK,UNK

REACTIONS (1)
  - ANAPHYLACTIC SHOCK [None]
